FAERS Safety Report 14400656 (Version 1)
Quarter: 2018Q1

REPORT INFORMATION
  Report Type: Report from Study
  Country: None (occurrence: US)
  Receive Date: 20180117
  Receipt Date: 20180117
  Transmission Date: 20180509
  Serious: Yes (Hospitalization)
  Sender: FDA-Public Use
  Company Number: US-ABBVIE-17K-163-2181414-00

PATIENT
  Age: 52 Year
  Sex: Female

DRUGS (2)
  1. HUMIRA [Suspect]
     Active Substance: ADALIMUMAB
     Indication: PSORIATIC ARTHROPATHY
     Route: 058
     Dates: start: 20171115
  2. PREDNISONE. [Concomitant]
     Active Substance: PREDNISONE
     Indication: PRODUCT USED FOR UNKNOWN INDICATION
     Route: 048

REACTIONS (12)
  - Gastrointestinal disorder [Unknown]
  - Haemorrhage [Unknown]
  - Fear of injection [Unknown]
  - Increased tendency to bruise [Unknown]
  - Injection site rash [Recovering/Resolving]
  - Contusion [Not Recovered/Not Resolved]
  - Device issue [Unknown]
  - Injury associated with device [Recovering/Resolving]
  - Incorrect dose administered [Unknown]
  - Hypoaesthesia [Not Recovered/Not Resolved]
  - Pruritus [Unknown]
  - Injury associated with device [Unknown]

NARRATIVE: CASE EVENT DATE: 2017
